FAERS Safety Report 5400099-X (Version None)
Quarter: 2007Q3

REPORT INFORMATION
  Report Type: 
  Country: None (occurrence: None)
  Receive Date: 20070726
  Receipt Date: 20070726
  Transmission Date: 20080115
  Serious: Yes (Hospitalization)
  Sender: FDA-Public Use
  Company Number: None

PATIENT
  Sex: Male
  Weight: 97.5 kg

DRUGS (9)
  1. BEVACIZUMAB (RHUMAB VEGF) [Suspect]
     Dosage: 1956 MG
     Dates: end: 20070703
  2. LEUCOVORIN CALCIUM [Suspect]
     Dosage: 3448 MG
     Dates: end: 20070703
  3. ELOXATIN [Suspect]
     Dosage: 730 MG
     Dates: end: 20070703
  4. FLUOROURACIL [Suspect]
     Dosage: 24136 MG
     Dates: end: 20070703
  5. COLACE [Concomitant]
  6. COMPAZINE [Concomitant]
  7. DEXEMETHASONE [Concomitant]
  8. LORAZEPAM [Concomitant]
  9. PERCOCET [Concomitant]

REACTIONS (4)
  - DEEP VEIN THROMBOSIS [None]
  - DISEASE PROGRESSION [None]
  - LUNG DISORDER [None]
  - PULMONARY EMBOLISM [None]
